FAERS Safety Report 8490939-2 (Version None)
Quarter: 2012Q2

REPORT INFORMATION
  Report Type: 
  Country: None (occurrence: None)
  Receive Date: 20120629
  Receipt Date: 20120629
  Transmission Date: 20120825
  Serious: Yes (Life-Threatening, Hospitalization, Other)
  Sender: FDA-Public Use
  Company Number: None

PATIENT
  Age: 16 Year
  Sex: Male
  Weight: 49.8957 kg

DRUGS (4)
  1. INDERAL [Concomitant]
  2. BENADRIL [Concomitant]
  3. OLANZAPINE [Suspect]
     Indication: AUTISM
     Dosage: 15 MG ,10 MG 2 TIMES PER DAY BUCCAL
     Route: 002
     Dates: start: 20091014, end: 20120627
  4. NEURONTIN [Concomitant]

REACTIONS (11)
  - CONSTIPATION [None]
  - MUCOUS STOOLS [None]
  - AKATHISIA [None]
  - ANAL FISSURE [None]
  - PRIAPISM [None]
  - ANAL HAEMORRHAGE [None]
  - RECTAL PROLAPSE [None]
  - SPEECH DISORDER [None]
  - SALIVARY HYPERSECRETION [None]
  - DECREASED APPETITE [None]
  - DROOLING [None]
